FAERS Safety Report 14583273 (Version 1)
Quarter: 2018Q1

REPORT INFORMATION
  Report Type: Spontaneous
  Country: US (occurrence: US)
  Receive Date: 20180228
  Receipt Date: 20180228
  Transmission Date: 20180509
  Serious: No
  Sender: FDA-Public Use
  Company Number: US-MYLANLABS-2018M1010942

PATIENT
  Age: 79 Year
  Sex: Female

DRUGS (2)
  1. SYMBICORT [Suspect]
     Active Substance: BUDESONIDE\FORMOTEROL FUMARATE DIHYDRATE
     Indication: CHRONIC OBSTRUCTIVE PULMONARY DISEASE
     Dosage: UNK
     Route: 055
  2. LEVALBUTEROL INHALATION SOLUTION, USP [Suspect]
     Active Substance: LEVALBUTEROL
     Indication: CHRONIC OBSTRUCTIVE PULMONARY DISEASE
     Dosage: UNK
     Route: 055
     Dates: start: 20140201

REACTIONS (12)
  - Feeling cold [Recovered/Resolved]
  - Gait disturbance [Not Recovered/Not Resolved]
  - Joint swelling [Recovered/Resolved]
  - Drug effect decreased [Not Recovered/Not Resolved]
  - Dyspepsia [Recovering/Resolving]
  - Nervousness [Not Recovered/Not Resolved]
  - Dyspnoea [Recovering/Resolving]
  - Muscle spasms [Recovering/Resolving]
  - Illusion [Not Recovered/Not Resolved]
  - Tension [Recovered/Resolved]
  - Hypertension [Recovered/Resolved]
  - Loss of personal independence in daily activities [Not Recovered/Not Resolved]
